FAERS Safety Report 5805433-4 (Version None)
Quarter: 2008Q3

REPORT INFORMATION
  Report Type: 
  Country: None (occurrence: None)
  Receive Date: 20080710
  Receipt Date: 20080701
  Transmission Date: 20090109
  Serious: Yes (Other)
  Sender: FDA-Public Use
  Company Number: US-JNJFOC-20080404814

PATIENT
  Sex: Female

DRUGS (3)
  1. DURAGESIC-100 [Suspect]
     Indication: PAIN
     Route: 062
  2. CODEINE SUL TAB [Concomitant]
     Indication: PAIN
     Route: 048
  3. DILANTIN [Concomitant]
     Indication: CONVULSION
     Route: 048

REACTIONS (5)
  - DRUG DEPENDENCE [None]
  - DRUG WITHDRAWAL CONVULSIONS [None]
  - THERAPY CESSATION [None]
  - WEIGHT DECREASED [None]
  - WITHDRAWAL SYNDROME [None]
